FAERS Safety Report 7556675-1 (Version None)
Quarter: 2011Q2

REPORT INFORMATION
  Report Type: 
  Country: None (occurrence: None)
  Receive Date: 20110620
  Receipt Date: 20110608
  Transmission Date: 20111010
  Serious: Yes (Hospitalization, Other)
  Sender: FDA-Public Use
  Company Number: US-AMGEN-USASP2011029519

PATIENT
  Age: 55 Year
  Sex: Female

DRUGS (1)
  1. ENBREL [Suspect]
     Indication: RHEUMATOID ARTHRITIS
     Dosage: 50 MG, QWK
     Dates: start: 20100301

REACTIONS (11)
  - NEUROPATHY PERIPHERAL [None]
  - GAIT DISTURBANCE [None]
  - VITAMIN D DECREASED [None]
  - CONVULSION [None]
  - BLOOD DISORDER [None]
  - BURSITIS [None]
  - OEDEMA PERIPHERAL [None]
  - RHEUMATOID ARTHRITIS [None]
  - MEMORY IMPAIRMENT [None]
  - OSTEOARTHRITIS [None]
  - CONTUSION [None]
